FAERS Safety Report 4456222-7 (Version None)
Quarter: 2004Q3

REPORT INFORMATION
  Report Type: 
  Country: None (occurrence: None)
  Receive Date: 20040920
  Receipt Date: 20040913
  Transmission Date: 20050211
  Serious: Yes (Other)
  Sender: FDA-Public Use
  Company Number: 2004-09-0928

PATIENT
  Age: 67 Year
  Sex: Male

DRUGS (7)
  1. AIROMIR HVA (SALBUTAMOL SULFATE) ORAL AEROSOL 'LIKE PROVENTIL HFA' [Suspect]
     Indication: ASTHMA
     Dosage: 2 PUFFS/4 HRS ORAL AER 1
     Route: 048
     Dates: start: 19980706, end: 20040823
  2. OMEPRAZOLE [Concomitant]
  3. CETIRIZINE HCL [Concomitant]
  4. TRIAMCINOLONE ACETONIDE [Concomitant]
  5. FEXOFENADINE HCL [Concomitant]
  6. AUTOHALER HFA (BECLOMETHASONE DIPROPIONATE) [Concomitant]
  7. DOXAZOSIN MESYLATE [Concomitant]

REACTIONS (1)
  - HEART RATE IRREGULAR [None]
